FAERS Safety Report 4370247-1 (Version None)
Quarter: 2004Q2

REPORT INFORMATION
  Report Type: 
  Country: None (occurrence: None)
  Receive Date: 20040603
  Receipt Date: 20040326
  Transmission Date: 20050107
  Serious: No
  Sender: FDA-Public Use
  Company Number: US-BRISTOL-MYERS SQUIBB COMPANY-12543104

PATIENT
  Age: 11 Year
  Sex: Male
  Weight: 56 kg

DRUGS (1)
  1. ABILIFY [Suspect]
     Route: 048
     Dates: start: 20040324

REACTIONS (3)
  - ABDOMINAL PAIN UPPER [None]
  - NAUSEA [None]
  - VOMITING [None]
